FAERS Safety Report 4749677-1 (Version None)
Quarter: 2005Q3

REPORT INFORMATION
  Report Type: 
  Country: None (occurrence: None)
  Receive Date: 20050822
  Receipt Date: 20050713
  Transmission Date: 20060218
  Serious: Yes (Life-Threatening, Hospitalization, Other)
  Sender: FDA-Public Use
  Company Number: PHNU2005DE02527

PATIENT
  Age: 46 Year
  Sex: Male
  Weight: 64 kg

DRUGS (7)
  1. OLANZAPINE [Suspect]
     Dosage: 30 MG/DAY
     Route: 048
  2. ARIPIPRAZOLE [Suspect]
     Dosage: 10 MG/DAY
     Route: 048
  3. CLOZARIL [Suspect]
     Indication: SCHIZOPHRENIA
     Dosage: UP TO 600 MG, QD
     Route: 048
     Dates: start: 19930101, end: 20041119
  4. RISPERDAL [Suspect]
     Indication: PSYCHOTIC DISORDER
     Dosage: 3 MG, QD
     Route: 048
     Dates: start: 20041115, end: 20050220
  5. TAVOR [Concomitant]
     Dosage: 1.5 MG - 3 MG/DAY
     Route: 065
     Dates: start: 20040906
  6. AGOPTON [Concomitant]
     Indication: GASTRITIS
     Dosage: 30 MG, QD
     Route: 048
     Dates: start: 20040817, end: 20041124
  7. GASTROZEPIN [Concomitant]
     Indication: SALIVARY HYPERSECRETION
     Dosage: 50 MG, QD
     Route: 048
     Dates: start: 20041031, end: 20041119

REACTIONS (9)
  - HODGKIN'S DISEASE [None]
  - LARYNGOSPASM [None]
  - LEUKOPENIA [None]
  - LYMPHADENOPATHY [None]
  - NEUTROPENIA [None]
  - NEUTROPHILIA [None]
  - OCULOGYRATION [None]
  - PYREXIA [None]
  - SURGERY [None]
